FAERS Safety Report 5490704-4 (Version None)
Quarter: 2007Q4

REPORT INFORMATION
  Report Type: 
  Country: None (occurrence: None)
  Receive Date: 20071019
  Receipt Date: 20071011
  Transmission Date: 20080405
  Serious: Yes (Hospitalization)
  Sender: FDA-Public Use
  Company Number: IT-ELI_LILLY_AND_COMPANY-IT200710003127

PATIENT
  Sex: Female

DRUGS (8)
  1. OLANZAPINE [Suspect]
     Indication: MANIA
     Dosage: 20 MG, DAILY (1/D)
     Route: 048
     Dates: start: 20070914, end: 20070927
  2. GLICONORM [Concomitant]
     Dosage: UNK, 3/D
     Route: 048
  3. METFORAL [Concomitant]
     Dosage: 500 MG, 3/D
     Route: 048
  4. CARDIRENE [Concomitant]
     Dosage: 160 MG, UNKNOWN
     Route: 048
  5. GLYCEROLTRINITRAT [Concomitant]
     Dosage: 5 MG, DAILY (1/D)
     Route: 062
  6. METOPROLOL [Concomitant]
     Dosage: 100 MG, UNKNOWN
     Route: 048
  7. LANSOPRAZOLE [Concomitant]
     Dosage: 1 D/F, UNK
     Route: 048
  8. SIVASTIN [Concomitant]
     Dosage: 10 MG, UNKNOWN

REACTIONS (2)
  - ELECTROCARDIOGRAM QT PROLONGED [None]
  - ELECTROCARDIOGRAM T WAVE INVERSION [None]
